FAERS Safety Report 8244855 (Version 8)
Quarter: 2013Q4

REPORT INFORMATION
  Report Type: Report from Study
  Country: US (occurrence: US)
  Receive Date: 20111115
  Receipt Date: 20131226
  Transmission Date: 20140711
  Serious: Yes (Other)
  Sender: FDA-Public Use
  Company Number: PHEH2011US05369

PATIENT
  Age: 24 Year
  Sex: Male
  Weight: 51 kg

DRUGS (8)
  1. AFINITOR [Suspect]
     Indication: ASTROCYTOMA, LOW GRADE
     Dosage: 10 MG/DAY
     Route: 048
     Dates: start: 20110623
  2. AFINITOR [Suspect]
     Indication: BRAIN NEOPLASM BENIGN
     Dosage: 10 MG/DAY
     Route: 048
     Dates: start: 20110623
  3. DEPAKOTE (VALPROATE SEMISODIUM) [Suspect]
     Dosage: 5 MG, DAILY
     Route: 048
     Dates: start: 20111025
  4. TOPAMAX (TOPIRAMATE) [Concomitant]
  5. LAMICTAL (LAMOTRIGINE) [Concomitant]
  6. CLONIDINE (CLONIDINE) [Concomitant]
  7. MVI [Concomitant]
  8. GLYCERIN [Concomitant]

REACTIONS (9)
  - Convulsion [Unknown]
  - Drop attacks [Unknown]
  - Poor quality sleep [Unknown]
  - Contusion [Unknown]
  - Scratch [Unknown]
  - Somnolence [Unknown]
  - Diarrhoea [Recovered/Resolved]
  - Viral infection [Recovered/Resolved]
  - Drug level below therapeutic [Unknown]
